FAERS Safety Report 5185300-2 (Version None)
Quarter: 2006Q4

REPORT INFORMATION
  Report Type: 
  Country: None (occurrence: None)
  Receive Date: 20061220
  Receipt Date: 20061207
  Transmission Date: 20070319
  Serious: Yes (Hospitalization)
  Sender: FDA-Public Use
  Company Number: US-ELI_LILLY_AND_COMPANY-US200612001475

PATIENT
  Sex: Female

DRUGS (11)
  1. FORTEO [Suspect]
     Indication: OSTEOPOROSIS
     Dosage: UNK, UNK
     Dates: start: 20060601
  2. TRIAMTERENE AND HYDROCHLOROTHIAZID ^HARRIS^ [Concomitant]
  3. DIOVAN [Concomitant]
  4. NEXIUM [Concomitant]
  5. MAGNESIUM [Concomitant]
  6. LACTAID [Concomitant]
  7. VITAMIN D [Concomitant]
  8. ASCORBIC ACID [Concomitant]
  9. GLUCOSAMINE [Concomitant]
  10. CALCIUM [Concomitant]
  11. HYDROCODONE BITARTRATE [Concomitant]
     Indication: PAIN

REACTIONS (4)
  - FEELING ABNORMAL [None]
  - GALLBLADDER DISORDER [None]
  - NERVOUSNESS [None]
  - PHARMACEUTICAL PRODUCT COMPLAINT [None]
